FAERS Safety Report 18812422 (Version 1)
Quarter: 2021Q1

REPORT INFORMATION
  Report Type: Spontaneous
  Country: CA (occurrence: CA)
  Receive Date: 20210130
  Receipt Date: 20210130
  Transmission Date: 20210419
  Serious: Yes (Other)
  Sender: FDA-Public Use
  Company Number: CA-TEVA-2021-CA-1873659

PATIENT
  Age: 74 Year
  Sex: Male

DRUGS (2)
  1. METHOTREXATE. [Suspect]
     Active Substance: METHOTREXATE
     Indication: RHEUMATOID ARTHRITIS
     Route: 058
  2. RINVOQ [Suspect]
     Active Substance: UPADACITINIB
     Indication: RHEUMATOID ARTHRITIS
     Dosage: 15 MILLIGRAM DAILY; TABLET (EXTENDED RELEASE)
     Route: 048

REACTIONS (5)
  - Musculoskeletal stiffness [Unknown]
  - X-ray abnormal [Unknown]
  - Synovitis [Unknown]
  - Therapeutic product effect incomplete [Unknown]
  - Treatment failure [Unknown]
